FAERS Safety Report 7484009-X (Version None)
Quarter: 2011Q2

REPORT INFORMATION
  Report Type: 
  Country: None (occurrence: None)
  Receive Date: 20110517
  Receipt Date: 20110509
  Transmission Date: 20111010
  Serious: Yes (Other)
  Sender: FDA-Public Use
  Company Number: US-TEVA-280822USA

PATIENT
  Age: 22 Year
  Sex: Female

DRUGS (5)
  1. FERROUS SULFATE TAB [Concomitant]
     Dosage: 600 MILLIGRAM;
  2. MYCOPHENOLATE MOFETIL [Suspect]
     Indication: IMMUNOSUPPRESSION
     Dosage: 1 GRAM;
     Route: 048
  3. OMEPRAZOLE [Concomitant]
     Dosage: 20 MILLIGRAM;
  4. PREDNISONE [Concomitant]
     Dosage: 5 MILLIGRAM;
  5. TACROLIMUS [Concomitant]
     Dosage: 6 MILLIGRAM;

REACTIONS (2)
  - INTENTIONAL OVERDOSE [None]
  - SUICIDE ATTEMPT [None]
